FAERS Safety Report 5980169-8 (Version None)
Quarter: 2008Q4

REPORT INFORMATION
  Report Type: 
  Country: None (occurrence: None)
  Receive Date: 20081202
  Receipt Date: 20081202
  Transmission Date: 20090506
  Serious: Yes (Hospitalization)
  Sender: FDA-Public Use
  Company Number: None

PATIENT
  Sex: Female
  Weight: 60.782 kg

DRUGS (1)
  1. FORTEO [Suspect]
     Indication: OSTEOPOROSIS
     Dosage: 20 MCG QD SQ
     Route: 058
     Dates: start: 20080701, end: 20080918

REACTIONS (6)
  - ASTHENIA [None]
  - BLISTER [None]
  - HERPES ZOSTER [None]
  - HYPOAESTHESIA [None]
  - PAIN [None]
  - PAIN IN EXTREMITY [None]
